FAERS Safety Report 5256640-3 (Version None)
Quarter: 2007Q1

REPORT INFORMATION
  Report Type: 
  Country: None (occurrence: None)
  Receive Date: 20070306
  Receipt Date: 20070226
  Transmission Date: 20070707
  Serious: Yes (Other)
  Sender: FDA-Public Use
  Company Number: JP-PFIZER INC-2004241727JP

PATIENT
  Sex: Male
  Weight: 22.6 kg

DRUGS (2)
  1. GENOTROPIN [Suspect]
     Indication: PRADER-WILLI SYNDROME
     Dosage: DAILY DOSE:.7MG
     Route: 058
  2. GENOTROPIN [Suspect]
     Dosage: DAILY DOSE:.9MG
     Route: 058

REACTIONS (3)
  - BLAST CELLS [None]
  - CONDITION AGGRAVATED [None]
  - SCOLIOSIS [None]
